FAERS Safety Report 23991645 (Version 1)
Quarter: 2024Q2

REPORT INFORMATION
  Report Type: Spontaneous
  Country: US (occurrence: US)
  Receive Date: 20240619
  Receipt Date: 20240619
  Transmission Date: 20240715
  Serious: No
  Sender: FDA-Public Use
  Company Number: US-Mission Pharmacal Company-2158290

PATIENT
  Age: 69 Year
  Sex: Male

DRUGS (11)
  1. THIOLA EC [Suspect]
     Active Substance: TIOPRONIN
     Indication: Cystinuria
     Route: 048
     Dates: start: 20190829
  2. CELEBREX [Concomitant]
     Active Substance: CELECOXIB
  3. TROSPIUM CHLORIDE [Concomitant]
     Active Substance: TROSPIUM CHLORIDE
  4. TRICOR [Concomitant]
     Active Substance: FENOFIBRATE
  5. TIZANIDINE HYDROCHLORIDE [Concomitant]
     Active Substance: TIZANIDINE HYDROCHLORIDE
  6. OMEPRAZOLE [Concomitant]
     Active Substance: DONEPEZIL HYDROCHLORIDE\OMEPRAZOLE\OMEPRAZOLE MAGNESIUM
  7. SIMVASTATIN [Concomitant]
     Active Substance: SIMVASTATIN
  8. LYRICA [Concomitant]
     Active Substance: PREGABALIN
  9. LORTAB [Concomitant]
     Active Substance: ACETAMINOPHEN\HYDROCODONE BITARTRATE
  10. LISINOPRIL [Concomitant]
     Active Substance: LISINOPRIL
  11. DIAZEPAM [Concomitant]
     Active Substance: DIAZEPAM

REACTIONS (1)
  - Back pain [Unknown]
